FAERS Safety Report 19416361 (Version 1)
Quarter: 2021Q2

REPORT INFORMATION
  Report Type: Spontaneous
  Country: US (occurrence: US)
  Receive Date: 20210615
  Receipt Date: 20210615
  Transmission Date: 20210717
  Serious: No
  Sender: FDA-Public Use
  Company Number: US-AUROBINDO-AUR-APL-2021-010790

PATIENT
  Age: 53 Year
  Sex: Female

DRUGS (2)
  1. FAMOTIDINE TABLET USP (OTC) 20MG [Suspect]
     Active Substance: FAMOTIDINE
     Indication: GASTROOESOPHAGEAL REFLUX DISEASE
     Dosage: 1 DOSAGE FORM
     Route: 048
     Dates: start: 20210310, end: 20210310
  2. FAMOTIDINE TABLET USP (OTC) 10MG [Suspect]
     Active Substance: FAMOTIDINE
     Indication: GASTROOESOPHAGEAL REFLUX DISEASE
     Dosage: 1 DOSAGE FORM
     Route: 048
     Dates: start: 20210311

REACTIONS (3)
  - Product quality issue [Unknown]
  - Bladder disorder [Recovered/Resolved]
  - Renal disorder [Recovered/Resolved]

NARRATIVE: CASE EVENT DATE: 20210310
